FAERS Safety Report 16017163 (Version 1)
Quarter: 2019Q1

REPORT INFORMATION
  Report Type: Spontaneous
  Country: AU (occurrence: AU)
  Receive Date: 20190228
  Receipt Date: 20190228
  Transmission Date: 20190418
  Serious: Yes (Other)
  Sender: FDA-Public Use
  Company Number: AU-AMREGENT-20190311

PATIENT
  Age: 32 Year
  Sex: Female

DRUGS (1)
  1. FERINJECT [Suspect]
     Active Substance: FERRIC CARBOXYMALTOSE
     Dosage: UNKNOWN
     Route: 041
     Dates: start: 20180917, end: 20180917

REACTIONS (5)
  - Feeling abnormal [Unknown]
  - Chest discomfort [Unknown]
  - Hypertension [Unknown]
  - Dyspnoea [Unknown]
  - Tachycardia [Unknown]

NARRATIVE: CASE EVENT DATE: 20180917
